FAERS Safety Report 5353698-8 (Version None)
Quarter: 2007Q2

REPORT INFORMATION
  Report Type: 
  Country: None (occurrence: None)
  Receive Date: 20070608
  Receipt Date: 20070528
  Transmission Date: 20071010
  Serious: Yes (Life-Threatening)
  Sender: FDA-Public Use
  Company Number: 2006JP000213

PATIENT
  Age: 68 Year
  Sex: Male
  Weight: 66 kg

DRUGS (16)
  1. TACROLIMUS [Suspect]
     Indication: RHEUMATOID ARTHRITIS
     Dosage: SEE IMAGE
     Route: 048
     Dates: start: 20051227, end: 20060109
  2. TACROLIMUS [Suspect]
     Indication: RHEUMATOID ARTHRITIS
     Dosage: SEE IMAGE
     Route: 048
     Dates: start: 20060110, end: 20060131
  3. PREDNISOLONE [Suspect]
     Dosage: 8 MG, /D, ORAL
     Route: 048
     Dates: end: 20060110
  4. PREDNISOLONE [Suspect]
     Dosage: 8 MG, /D, ORAL
     Route: 048
     Dates: start: 20060111, end: 20060124
  5. PREDNISOLONE [Suspect]
     Dosage: 8 MG, /D, ORAL
     Route: 048
     Dates: start: 20060125, end: 20060131
  6. VOLTAREN (DICLOFENAC) SUPPOSITORY, 25 MG [Concomitant]
  7. INDACIN (INDOMETACIN) SUPPOSITORY [Concomitant]
  8. GLYCOL SALICYLATE (GLYCOL SALICYLATE) TAPE [Concomitant]
  9. LANSOPRAZOLE [Concomitant]
  10. AMLODIPINE BESYLATE [Concomitant]
  11. ALFAROL (ALFACALCIDOL) CAPSULE [Concomitant]
  12. LIVALO (ITAVASTATIN CALCIUM) [Concomitant]
  13. LOSARTAN POTASSIUM [Concomitant]
  14. BONALON (ALENDRONIC ACID) [Concomitant]
  15. MAGNESIUM OXIDE (MAGNESIUM OXIDE) POWDER [Concomitant]
  16. SILBEX (TEPRENONE) CAPSULE [Concomitant]

REACTIONS (4)
  - ARTHRITIS BACTERIAL [None]
  - CULTURE POSITIVE [None]
  - OSTEOMYELITIS BACTERIAL [None]
  - STAPHYLOCOCCAL INFECTION [None]
